FAERS Safety Report 18283337 (Version 1)
Quarter: 2020Q3

REPORT INFORMATION
  Report Type: Spontaneous
  Country: IT (occurrence: IT)
  Receive Date: 20200918
  Receipt Date: 20200918
  Transmission Date: 20201103
  Serious: Yes (Hospitalization)
  Sender: FDA-Public Use
  Company Number: IT-ACELLA PHARMACEUTICALS, LLC-2090910

PATIENT
  Age: 6 Year
  Sex: Male

DRUGS (1)
  1. HYDROCODONE BITARTRATE AND CHLORPHENIRAMINE MALEATE [Suspect]
     Active Substance: CHLORPHENIRAMINE MALEATE\HYDROCODONE BITARTRATE
     Indication: RHINORRHOEA
     Route: 048

REACTIONS (1)
  - Electrocardiogram QT prolonged [Unknown]
